FAERS Safety Report 8756087 (Version 1)
Quarter: 2012Q4

REPORT INFORMATION
  Report Type: 
  Country: US (occurrence: US)
  Receive Date: 20120828
  Receipt Date: 20120828
  Transmission Date: 20130627
  Serious: No
  Sender: FDA-Public Use
  Company Number: US-PFIZER INC-2012207622

PATIENT
  Sex: Female

DRUGS (2)
  1. ADVIL [Suspect]
     Indication: ARTHROPATHY
     Dosage: two capsules of 200mg in the afternoon and 1 capsule of 200mg one hour later
     Route: 048
     Dates: start: 20120822
  2. CORTISONE [Suspect]
     Indication: ARTHROPATHY
     Dosage: UNK
     Dates: start: 20120821

REACTIONS (3)
  - Drug ineffective [Unknown]
  - Inappropriate schedule of drug administration [Unknown]
  - Insomnia [Unknown]
